FAERS Safety Report 14112049 (Version 2)
Quarter: 2017Q4

REPORT INFORMATION
  Report Type: Report from Study
  Country: CO (occurrence: CO)
  Receive Date: 20171020
  Receipt Date: 20171022
  Transmission Date: 20180321
  Serious: Yes (Death)
  Sender: FDA-Public Use
  Company Number: PHHY2017CO048777

PATIENT
  Age: 76 Year
  Sex: Male
  Weight: 55 kg

DRUGS (1)
  1. EXJADE [Suspect]
     Active Substance: DEFERASIROX
     Indication: MYELODYSPLASTIC SYNDROME
     Dosage: 500 MG, BID
     Route: 048
     Dates: start: 20141019

REACTIONS (5)
  - Death [Fatal]
  - Somnolence [Unknown]
  - Eye swelling [Unknown]
  - Depression [Unknown]
  - Malaise [Unknown]

NARRATIVE: CASE EVENT DATE: 20141019
